FAERS Safety Report 4678535-6 (Version None)
Quarter: 2005Q2

REPORT INFORMATION
  Report Type: 
  Country: None (occurrence: None)
  Receive Date: 20050601
  Receipt Date: 20050525
  Transmission Date: 20051028
  Serious: Yes (Other)
  Sender: FDA-Public Use
  Company Number: US-JNJFOC-20050301025

PATIENT
  Sex: Male
  Weight: 53.98 kg

DRUGS (3)
  1. LEVAQUIN [Suspect]
     Indication: PNEUMONIA
  2. PHENERGAN/DM [Concomitant]
     Route: 049
  3. PHENERGAN/DM [Concomitant]
     Indication: BRONCHITIS
     Route: 049

REACTIONS (4)
  - AGEUSIA [None]
  - ASTHENIA [None]
  - FATIGUE [None]
  - WEIGHT DECREASED [None]
